FAERS Safety Report 22798617 (Version 14)
Quarter: 2025Q1

REPORT INFORMATION
  Report Type: Report from Study
  Country: US (occurrence: US)
  Receive Date: 20230808
  Receipt Date: 20250128
  Transmission Date: 20250409
  Serious: Yes (Other)
  Sender: TAKEDA
  Company Number: US-TAKEDA-2022TUS088624

PATIENT
  Sex: Female
  Weight: 106 kg

DRUGS (34)
  1. HUMAN IMMUNOGLOBULIN G [Suspect]
     Active Substance: HUMAN IMMUNOGLOBULIN G
     Indication: Immunodeficiency common variable
     Dosage: 12 GRAM, 1/WEEK
     Dates: start: 20221104
  2. HUMAN IMMUNOGLOBULIN G [Suspect]
     Active Substance: HUMAN IMMUNOGLOBULIN G
     Dosage: 12 GRAM, 1/WEEK
     Dates: start: 20221202
  3. ACETAMINOPHEN [Concomitant]
     Active Substance: ACETAMINOPHEN
  4. OMEPRAZOLE [Concomitant]
     Active Substance: OMEPRAZOLE
  5. SYNTHROID [Concomitant]
     Active Substance: LEVOTHYROXINE SODIUM
  6. ZYRTEC [Concomitant]
     Active Substance: CETIRIZINE HYDROCHLORIDE
  7. CRESTOR [Concomitant]
     Active Substance: ROSUVASTATIN CALCIUM
  8. FLUTICASONE PROPIONATE [Concomitant]
     Active Substance: FLUTICASONE PROPIONATE
  9. DOXYCYCLINE HYCLATE [Concomitant]
     Active Substance: DOXYCYCLINE HYCLATE
  10. SINGULAIR [Concomitant]
     Active Substance: MONTELUKAST SODIUM
  11. AUGMENTIN [Concomitant]
     Active Substance: AMOXICILLIN\CLAVULANATE POTASSIUM
  12. CALCIUM\VITAMIN D [Concomitant]
     Active Substance: CALCIUM\VITAMIN D
  13. GABAPENTIN [Concomitant]
     Active Substance: GABAPENTIN
  14. CEPHALEXIN [Concomitant]
     Active Substance: CEPHALEXIN
  15. OXYBUTYNIN [Concomitant]
     Active Substance: OXYBUTYNIN
  16. DIPHENHYDRAMINE HYDROCHLORIDE [Concomitant]
     Active Substance: DIPHENHYDRAMINE HYDROCHLORIDE
  17. Lmx [Concomitant]
  18. HYOSCYAMINE SULFATE [Concomitant]
     Active Substance: HYOSCYAMINE SULFATE
  19. DESONATE [Concomitant]
     Active Substance: DESONIDE
  20. OLOPATADINE HYDROCHLORIDE [Concomitant]
     Active Substance: OLOPATADINE HYDROCHLORIDE
  21. TYLENOL EXTRA STRENGTH [Concomitant]
     Active Substance: ACETAMINOPHEN
  22. LEVAQUIN [Concomitant]
     Active Substance: LEVOFLOXACIN
  23. RESTASIS [Concomitant]
     Active Substance: CYCLOSPORINE
  24. MUCINEX [Concomitant]
     Active Substance: GUAIFENESIN
  25. EPINEPHRINE [Concomitant]
     Active Substance: EPINEPHRINE
  26. SODIUM CITRATE [Concomitant]
     Active Substance: SODIUM CITRATE
  27. HIZENTRA [Concomitant]
     Active Substance: HUMAN IMMUNOGLOBULIN G
  28. CYCLOSPORINE [Concomitant]
     Active Substance: CYCLOSPORINE
  29. LIDOCAINE [Concomitant]
     Active Substance: LIDOCAINE
  30. NM-6603 [Concomitant]
     Active Substance: NM-6603
  31. GENTAMICIN [Concomitant]
     Active Substance: GENTAMICIN
  32. SPIRIVA [Concomitant]
     Active Substance: TIOTROPIUM BROMIDE MONOHYDRATE
  33. VITAMIN B [Concomitant]
     Active Substance: VITAMIN B
  34. DESONIDE [Concomitant]
     Active Substance: DESONIDE

REACTIONS (14)
  - Kidney infection [Not Recovered/Not Resolved]
  - Pneumonia [Unknown]
  - Infection [Unknown]
  - Urinary tract infection [Recovering/Resolving]
  - Cystitis [Not Recovered/Not Resolved]
  - Bacterial infection [Unknown]
  - Furuncle [Unknown]
  - Bronchitis [Unknown]
  - COVID-19 [Unknown]
  - Sinus disorder [Unknown]
  - Product distribution issue [Unknown]
  - Product dose omission issue [Unknown]
  - Inappropriate schedule of product administration [Unknown]
  - Sinusitis [Not Recovered/Not Resolved]
